FAERS Safety Report 10240177 (Version 1)
Quarter: 2014Q2

REPORT INFORMATION
  Report Type: Spontaneous
  Country: ES (occurrence: ES)
  Receive Date: 20140617
  Receipt Date: 20140617
  Transmission Date: 20141212
  Serious: Yes (Other)
  Sender: FDA-Public Use
  Company Number: ES-AMGEN-ESPSP2014044111

PATIENT
  Age: 75 Year
  Sex: Male
  Weight: 95 kg

DRUGS (3)
  1. XGEVA [Suspect]
     Indication: METASTASES TO BONE
     Dosage: 120 MG, QMO
     Route: 058
     Dates: start: 20130227, end: 20140317
  2. TAXOTERE [Concomitant]
     Indication: PROSTATE CANCER
     Dosage: 7, EVERY 21 DAYS
     Route: 042
     Dates: start: 20120229, end: 20120704
  3. ENZALUTAMIDE [Concomitant]
     Indication: PROSTATE CANCER
     Dosage: 2, QD
     Route: 048
     Dates: start: 20140217

REACTIONS (1)
  - Osteonecrosis of jaw [Recovering/Resolving]
